FAERS Safety Report 10690507 (Version 1)
Quarter: 2015Q1

REPORT INFORMATION
  Report Type: Report from Study
  Country: US (occurrence: US)
  Receive Date: 20150105
  Receipt Date: 20150105
  Transmission Date: 20150720
  Serious: Yes (Hospitalization)
  Sender: FDA-Public Use
  Company Number: US-SA-2014SA179382

PATIENT
  Age: 73 Year
  Sex: Male

DRUGS (1)
  1. LANTUS [Suspect]
     Active Substance: INSULIN GLARGINE
     Indication: TYPE 2 DIABETES MELLITUS
     Dosage: DOSE:30 U AM AND 50 U PM
     Route: 065
     Dates: start: 2006

REACTIONS (3)
  - Pneumonia [Not Recovered/Not Resolved]
  - Drug administration error [Unknown]
  - Cardiac operation [Unknown]

NARRATIVE: CASE EVENT DATE: 2014
